FAERS Safety Report 17689890 (Version 1)
Quarter: 2020Q2

REPORT INFORMATION
  Report Type: Spontaneous
  Country: US (occurrence: US)
  Receive Date: 20200421
  Receipt Date: 20200421
  Transmission Date: 20200714
  Serious: No
  Sender: FDA-Public Use
  Company Number: None

PATIENT
  Age: 14 Year
  Sex: Male
  Weight: 37.35 kg

DRUGS (1)
  1. METHYLPHENIDATE HYDROCHLORIDE ER 27 MG T [Suspect]
     Active Substance: METHYLPHENIDATE HYDROCHLORIDE
     Indication: ATTENTION DEFICIT HYPERACTIVITY DISORDER
     Dosage: ?          QUANTITY:1 CAPSULE(S);?
     Route: 048
     Dates: start: 20200409, end: 20200421

REACTIONS (4)
  - Product substitution issue [None]
  - Change in sustained attention [None]
  - Loss of personal independence in daily activities [None]
  - Obsessive-compulsive disorder [None]

NARRATIVE: CASE EVENT DATE: 20200409
